FAERS Safety Report 6840230-2 (Version None)
Quarter: 2010Q3

REPORT INFORMATION
  Report Type: 
  Country: None (occurrence: None)
  Receive Date: 20100714
  Receipt Date: 20100630
  Transmission Date: 20110219
  Serious: Yes (Other)
  Sender: FDA-Public Use
  Company Number: PHHY2010GB03655

PATIENT
  Sex: Male
  Weight: 22.1 kg

DRUGS (4)
  1. DESFERAL [Suspect]
     Indication: THALASSAEMIA BETA
     Dosage: 4 UNITS PER WEEK
     Route: 058
     Dates: end: 20090301
  2. VITAMIN C [Concomitant]
     Indication: CHELATION THERAPY
     Dosage: UNK
     Route: 048
  3. ABDEC [Concomitant]
     Indication: VITAMIN SUPPLEMENTATION
     Dosage: 0.6 ML, QD
     Route: 048
  4. SOLVAZINC [Concomitant]
     Dosage: 1 DF, QD
     Route: 048

REACTIONS (2)
  - EYE DISORDER [None]
  - RETINAL DYSTROPHY [None]
